FAERS Safety Report 20407401 (Version 1)
Quarter: 2022Q1

REPORT INFORMATION
  Report Type: Spontaneous
  Country: JP (occurrence: JP)
  Receive Date: 20220131
  Receipt Date: 20220131
  Transmission Date: 20220423
  Serious: Yes (Other)
  Sender: FDA-Public Use
  Company Number: JP-PFIZER INC-202200094170

PATIENT

DRUGS (1)
  1. SUTENT [Suspect]
     Active Substance: SUNITINIB MALATE
     Dosage: UNK
     Route: 048

REACTIONS (7)
  - Thrombocytopenia [Unknown]
  - Disseminated intravascular coagulation [Unknown]
  - Urogenital haemorrhage [Unknown]
  - Epistaxis [Unknown]
  - Haematuria [Unknown]
  - Renal disorder [Unknown]
  - Impaired healing [Unknown]
